FAERS Safety Report 5764940-3 (Version None)
Quarter: 2008Q2

REPORT INFORMATION
  Report Type: 
  Country: None (occurrence: None)
  Receive Date: 20080611
  Receipt Date: 20080604
  Transmission Date: 20081010
  Serious: Yes (Hospitalization)
  Sender: FDA-Public Use
  Company Number: B0479561A

PATIENT
  Age: 46 Year
  Sex: Female

DRUGS (2)
  1. SERETIDE [Suspect]
     Indication: BRONCHITIS
     Dosage: 400MG PER DAY
     Route: 055
     Dates: start: 20070217
  2. MOXIFLOXACIN HCL [Concomitant]
     Indication: BRONCHITIS
     Dosage: 400MG PER DAY
     Route: 048
     Dates: start: 20070217, end: 20070217

REACTIONS (4)
  - ANAPHYLACTOID REACTION [None]
  - BRONCHOSPASM [None]
  - PAIN [None]
  - URTICARIA [None]
